FAERS Safety Report 6176894-9 (Version None)
Quarter: 2009Q2

REPORT INFORMATION
  Report Type: 
  Country: None (occurrence: None)
  Receive Date: 20090501
  Receipt Date: 20090422
  Transmission Date: 20091009
  Serious: Yes (Hospitalization)
  Sender: FDA-Public Use
  Company Number: US-AMGEN-QUU342583

PATIENT
  Sex: Female
  Weight: 72.6 kg

DRUGS (4)
  1. ENBREL [Suspect]
     Indication: RHEUMATOID ARTHRITIS
     Route: 058
     Dates: start: 20071101, end: 20090310
  2. METHOTREXATE [Concomitant]
     Route: 048
     Dates: start: 20070309
  3. PRILOSEC [Concomitant]
     Dates: start: 20080801
  4. NAPROXEN [Concomitant]
     Dates: start: 20080801

REACTIONS (5)
  - CELLULITIS [None]
  - DRUG INEFFECTIVE [None]
  - GAIT DISTURBANCE [None]
  - MUSCULOSKELETAL STIFFNESS [None]
  - SKIN FISSURES [None]
